FAERS Safety Report 7369740-9 (Version None)
Quarter: 2011Q1

REPORT INFORMATION
  Report Type: 
  Country: None (occurrence: None)
  Receive Date: 20110323
  Receipt Date: 20100923
  Transmission Date: 20110831
  Serious: Yes (Death, Hospitalization)
  Sender: FDA-Public Use
  Company Number: US-BAYER-2011-016206

PATIENT
  Sex: Male

DRUGS (18)
  1. SODIUM BICARBONATE [Concomitant]
     Dosage: 25 MEQ, UNK
     Route: 042
     Dates: start: 20040224, end: 20040224
  2. LIDOCAINE [Concomitant]
     Dosage: 100 MG, UNK
     Route: 042
     Dates: start: 20040224, end: 20040224
  3. ASPIRIN [Concomitant]
  4. PLAVIX [Concomitant]
  5. NAPROSYN [Concomitant]
  6. METOPROLOL [Concomitant]
  7. APROTININ [Concomitant]
     Dosage: 2.000 K/U
     Route: 042
     Dates: start: 20040224, end: 20040224
  8. AMIODARONE HCL [Concomitant]
     Dosage: UNK
     Route: 042
     Dates: start: 20040224
  9. ALBUMIN (HUMAN) [Concomitant]
     Dosage: 25 G, UNK
     Route: 042
     Dates: start: 20040224, end: 20040224
  10. MANNITOL [Concomitant]
     Dosage: 37.5 G, UNK
     Route: 042
     Dates: start: 20040224, end: 20040224
  11. MAGNESIUM SULFATE [Concomitant]
     Dosage: 2 G, UNK
     Route: 042
     Dates: start: 20040224, end: 20040224
  12. HEPARIN [Concomitant]
     Dosage: 43.000 U, UNK
     Route: 042
     Dates: start: 20040224, end: 20040224
  13. TRASYLOL [Suspect]
     Indication: CORONARY ARTERY BYPASS
     Dosage: UNK
     Route: 042
     Dates: start: 20040224, end: 20040224
  14. CONTRAST MEDIA [Concomitant]
     Indication: CATHETERISATION CARDIAC
     Dosage: UNK
     Dates: start: 20040223
  15. BUMEX [Concomitant]
     Dosage: UNK
     Route: 041
     Dates: start: 20040226, end: 20040228
  16. LISINOPRIL [Concomitant]
  17. TEQUIN [Concomitant]
     Indication: URINARY TRACT INFECTION
  18. PLASMALYTE [GLUCOSE,POTASSIUM CHLORIDE] [Concomitant]
     Dosage: 800 ML, UNK
     Route: 042
     Dates: start: 20040224, end: 20040224

REACTIONS (2)
  - DEATH [None]
  - RENAL FAILURE ACUTE [None]
